FAERS Safety Report 5009464-6 (Version None)
Quarter: 2006Q2

REPORT INFORMATION
  Report Type: 
  Country: None (occurrence: None)
  Receive Date: 20060522
  Receipt Date: 20060505
  Transmission Date: 20061013
  Serious: Yes (Hospitalization, Other)
  Sender: FDA-Public Use
  Company Number: USA-2006-0024167

PATIENT
  Age: 61 Year
  Sex: Female

DRUGS (3)
  1. OXYCONTIN [Suspect]
     Indication: PREOPERATIVE CARE
  2. OXYCODONE HCL [Suspect]
     Indication: PAIN
  3. HYDROMORPHONE HCL [Suspect]
     Indication: BREAKTHROUGH PAIN
     Dosage: 4 MG, TID PRN

REACTIONS (20)
  - ANXIETY [None]
  - BLOOD PRESSURE INCREASED [None]
  - CARDIAC DISORDER [None]
  - CHEST PAIN [None]
  - DRUG DEPENDENCE [None]
  - DRUG WITHDRAWAL SYNDROME [None]
  - DYSPNOEA [None]
  - EJECTION FRACTION DECREASED [None]
  - ELECTROCARDIOGRAM ST SEGMENT ELEVATION [None]
  - HEART RATE INCREASED [None]
  - HYPERHIDROSIS [None]
  - MEDICATION ERROR [None]
  - MITRAL VALVE INCOMPETENCE [None]
  - NAUSEA [None]
  - PNEUMONIA [None]
  - PULMONARY OEDEMA [None]
  - RESPIRATORY DISTRESS [None]
  - RESPIRATORY FAILURE [None]
  - TACHYCARDIA [None]
  - VENTRICULAR HYPOKINESIA [None]
